FAERS Safety Report 25278841 (Version 1)
Quarter: 2025Q2

REPORT INFORMATION
  Report Type: Spontaneous
  Country: CA (occurrence: CA)
  Receive Date: 20250507
  Receipt Date: 20250507
  Transmission Date: 20250717
  Serious: Yes (Other)
  Sender: PFIZER
  Company Number: CA-PFIZER INC-202500095437

PATIENT
  Age: 79 Year
  Sex: Male

DRUGS (5)
  1. HEPARIN SODIUM [Suspect]
     Active Substance: HEPARIN SODIUM
     Route: 042
  2. ELIQUIS [Concomitant]
     Active Substance: APIXABAN
  3. PREDNISONE [Concomitant]
     Active Substance: PREDNISONE
  4. QUETIAPINE [Concomitant]
     Active Substance: QUETIAPINE
  5. RISPERIDONE [Concomitant]
     Active Substance: RISPERIDONE

REACTIONS (3)
  - Lower gastrointestinal haemorrhage [Not Recovered/Not Resolved]
  - Melaena [Not Recovered/Not Resolved]
  - Polyp [Not Recovered/Not Resolved]
